FAERS Safety Report 9225620 (Version 2)
Quarter: 2013Q2

REPORT INFORMATION
  Report Type: Spontaneous
  Country: IT (occurrence: IT)
  Receive Date: 20130411
  Receipt Date: 20130621
  Transmission Date: 20140414
  Serious: Yes (Life-Threatening, Other)
  Sender: FDA-Public Use
  Company Number: IT-ROCHE-1209692

PATIENT
  Age: 92 Year
  Sex: Male
  Weight: 72 kg

DRUGS (7)
  1. METALYSE [Suspect]
     Indication: PULMONARY EMBOLISM
     Dosage: DAILY DOSE:7000UNITS
     Route: 065
     Dates: start: 20040712, end: 20040712
  2. ALUPENT [Suspect]
     Indication: PULMONARY EMBOLISM
     Route: 040
     Dates: start: 20040712, end: 20040712
  3. HEPARIN [Suspect]
     Indication: PULMONARY EMBOLISM
     Dosage: FOLLOWED BY INFUSION OF 800 IU /HOUR
     Route: 040
     Dates: start: 20040712
  4. ATROPINE [Suspect]
     Indication: BRADYCARDIA
     Route: 040
     Dates: start: 20040712, end: 20040712
  5. ATROPINE [Suspect]
     Indication: SHOCK
  6. DOPAMINE [Suspect]
     Indication: BRADYCARDIA
     Dosage: DAILY DOSE:10 MCG/KG/MIN
     Route: 042
     Dates: start: 20040712
  7. DOPAMINE [Suspect]
     Indication: SHOCK

REACTIONS (5)
  - Respiratory distress [Recovered/Resolved]
  - Deep vein thrombosis [Unknown]
  - Subarachnoid haemorrhage [Not Recovered/Not Resolved]
  - Drug ineffective [Recovered/Resolved]
  - Left ventricular dysfunction [Unknown]
